FAERS Safety Report 19793322 (Version 1)
Quarter: 2021Q3

REPORT INFORMATION
  Report Type: Spontaneous
  Country: BG (occurrence: BG)
  Receive Date: 20210906
  Receipt Date: 20210906
  Transmission Date: 20211014
  Serious: Yes (Other)
  Sender: FDA-Public Use
  Company Number: BG-SA-2021SA039854

PATIENT
  Sex: Female

DRUGS (1)
  1. CLEXANE [Suspect]
     Active Substance: ENOXAPARIN SODIUM
     Indication: PRODUCT USED FOR UNKNOWN INDICATION
     Dosage: 4000 IU (40 MG)/0,4 ML
     Route: 065

REACTIONS (3)
  - Off label use [Unknown]
  - Exposure during pregnancy [Unknown]
  - Abortion spontaneous [Unknown]
